FAERS Safety Report 8812425 (Version 2)
Quarter: 2015Q1

REPORT INFORMATION
  Report Type: Report from Study
  Country: US (occurrence: US)
  Receive Date: 20120927
  Receipt Date: 20150317
  Transmission Date: 20150721
  Serious: Yes (Death)
  Sender: FDA-Public Use
  Company Number: US-ROCHE-1123585

PATIENT
  Sex: Male
  Weight: 55.6 kg

DRUGS (5)
  1. CYTOXAN [Concomitant]
     Active Substance: CYCLOPHOSPHAMIDE
  2. AVASTIN [Suspect]
     Active Substance: BEVACIZUMAB
     Indication: LYMPHOMA
     Route: 065
  3. PREDNISONE. [Concomitant]
     Active Substance: PREDNISONE
  4. ETOPOSIDE. [Concomitant]
     Active Substance: ETOPOSIDE
  5. AVASTIN [Suspect]
     Active Substance: BEVACIZUMAB
     Indication: IMMUNOBLASTIC LYMPHOMA

REACTIONS (2)
  - Death [Fatal]
  - Off label use [Unknown]
